FAERS Safety Report 21379951 (Version 1)
Quarter: 2022Q3

REPORT INFORMATION
  Report Type: Spontaneous
  Country: US (occurrence: US)
  Receive Date: 20220927
  Receipt Date: 20220927
  Transmission Date: 20221026
  Serious: No
  Sender: FDA-Public Use
  Company Number: US-AUROBINDO-AUR-APL-2022-008429

PATIENT
  Age: 67 Year
  Sex: Female
  Weight: 62.1 kg

DRUGS (1)
  1. ALENDRONATE SODIUM [Suspect]
     Active Substance: ALENDRONATE SODIUM
     Indication: Product used for unknown indication
     Dosage: 1 DOSAGE FORM (1 TABLET A DAY), ONCE A DAY
     Route: 065

REACTIONS (1)
  - Product dose omission issue [Unknown]
